FAERS Safety Report 22389977 (Version 1)
Quarter: 2023Q2

REPORT INFORMATION
  Report Type: Spontaneous
  Country: US (occurrence: None)
  Receive Date: 20230530
  Receipt Date: 20230530
  Transmission Date: 20230721
  Serious: No
  Sender: FDA-Public Use
  Company Number: None

PATIENT
  Age: 60 Year
  Sex: Female
  Weight: 70.2 kg

DRUGS (18)
  1. TRULANCE [Suspect]
     Active Substance: PLECANATIDE
     Indication: Irritable bowel syndrome
     Route: 048
     Dates: start: 20230528, end: 20230529
  2. TRULANCE [Suspect]
     Active Substance: PLECANATIDE
     Indication: Constipation
  3. CLONAZEPAM [Concomitant]
     Active Substance: CLONAZEPAM
  4. NEBIVOLOL [Concomitant]
     Active Substance: NEBIVOLOL
  5. PRAVASTATIN [Concomitant]
     Active Substance: PRAVASTATIN
  6. ASPIRIN [Concomitant]
     Active Substance: ASPIRIN
  7. SPIRONOLACTONE [Concomitant]
     Active Substance: SPIRONOLACTONE
  8. CLARINEX [Concomitant]
     Active Substance: DESLORATADINE
  9. DEVICE [Concomitant]
     Active Substance: DEVICE
  10. ION Gut Repair [Concomitant]
  11. ARMRA colostrum [Concomitant]
  12. VITAMIN C [Concomitant]
     Active Substance: ASCORBIC ACID
  13. COENZYME Q10 [Concomitant]
     Active Substance: DIETARY SUPPLEMENT\UBIDECARENONE
  14. MAGNESIUM L-THREONATE [Concomitant]
  15. TYLENOL [Concomitant]
     Active Substance: ACETAMINOPHEN
  16. COLACE [Concomitant]
     Active Substance: DOCUSATE SODIUM
  17. compounded methylated [Concomitant]
  18. b12 injections [Concomitant]

REACTIONS (17)
  - Diarrhoea [None]
  - Diarrhoea [None]
  - Muscle spasms [None]
  - Pain [None]
  - Dehydration [None]
  - Feeling abnormal [None]
  - Fatigue [None]
  - Abdominal pain [None]
  - Abdominal distension [None]
  - Nausea [None]
  - Ventricular extrasystoles [None]
  - Condition aggravated [None]
  - Flatulence [None]
  - Palpitations [None]
  - Head discomfort [None]
  - Headache [None]
  - Malaise [None]

NARRATIVE: CASE EVENT DATE: 20230528
